FAERS Safety Report 23331367 (Version 1)
Quarter: 2023Q4

REPORT INFORMATION
  Report Type: Spontaneous
  Country: US (occurrence: None)
  Receive Date: 20231221
  Receipt Date: 20231221
  Transmission Date: 20240110
  Serious: Yes (Death)
  Sender: FDA-Public Use
  Company Number: None

PATIENT
  Age: 56 Year
  Sex: Male

DRUGS (6)
  1. MOUNJARO [Suspect]
     Active Substance: TIRZEPATIDE
     Indication: Type 2 diabetes mellitus
     Dates: start: 20231111
  2. ELIQUIS [Concomitant]
     Active Substance: APIXABAN
  3. LISINOPRIL [Concomitant]
     Active Substance: LISINOPRIL
  4. ROSUVASTATIN [Concomitant]
     Active Substance: ROSUVASTATIN
  5. SOTALOL [Concomitant]
     Active Substance: SOTALOL
  6. centrum multivitamin [Concomitant]

REACTIONS (7)
  - Abdominal pain upper [None]
  - Diarrhoea [None]
  - Vomiting [None]
  - Hypophagia [None]
  - Cold sweat [None]
  - Unresponsive to stimuli [None]
  - Foaming at mouth [None]

NARRATIVE: CASE EVENT DATE: 20231124
